FAERS Safety Report 11835786 (Version 5)
Quarter: 2016Q1

REPORT INFORMATION
  Report Type: Spontaneous
  Country: US (occurrence: US)
  Receive Date: 20151215
  Receipt Date: 20160229
  Transmission Date: 20160525
  Serious: Yes (Other)
  Sender: FDA-Public Use
  Company Number: US-ACTAVIS-2015-27660

PATIENT
  Age: 39 Year
  Sex: Female

DRUGS (9)
  1. CLONAZEPAM. [Concomitant]
     Active Substance: CLONAZEPAM
     Indication: INSOMNIA
     Dosage: 0.5 MG, BID
     Route: 065
  2. QUETIAPINE (AGPTC) [Suspect]
     Active Substance: QUETIAPINE
     Indication: PSYCHOTIC DISORDER
     Dosage: 50 MG H.S
     Route: 065
  3. BENZTROPINE [Concomitant]
     Active Substance: BENZTROPINE
     Indication: PSYCHOTIC DISORDER
     Dosage: 2 MG, DAILY
     Route: 065
  4. HALOPERIDOL (WATSON LABORATORIES) [Suspect]
     Active Substance: HALOPERIDOL
     Indication: PSYCHOTIC DISORDER
     Dosage: 20 MG, DAILY
     Route: 065
  5. PREDNISONE. [Concomitant]
     Active Substance: PREDNISONE
     Indication: COLITIS
     Dosage: 40 MG, DAILY
     Route: 065
  6. ZINC [Concomitant]
     Active Substance: ZINC\ZINC CHLORIDE
     Indication: HEPATO-LENTICULAR DEGENERATION
  7. LORAZEPAM. [Concomitant]
     Active Substance: LORAZEPAM
     Indication: INSOMNIA
     Dosage: UNK
     Route: 065
  8. TRIENTINE [Concomitant]
     Active Substance: TRIENTINE
     Indication: HEPATO-LENTICULAR DEGENERATION
  9. OLANZAPINE (UNKNOWN) [Suspect]
     Active Substance: OLANZAPINE
     Indication: PSYCHOTIC DISORDER
     Dosage: 2.5 MG, SINGLE
     Route: 065

REACTIONS (4)
  - Dystonia [Unknown]
  - Orthostatic hypotension [Unknown]
  - Sedation [Unknown]
  - Parkinsonism [Recovering/Resolving]
